FAERS Safety Report 8584343-6 (Version None)
Quarter: 2012Q3

REPORT INFORMATION
  Report Type: 
  Country: None (occurrence: None)
  Receive Date: 20120810
  Receipt Date: 20120802
  Transmission Date: 20120928
  Serious: No
  Sender: FDA-Public Use
  Company Number: US-BIOGENIDEC-2012BI029287

PATIENT
  Age: 52 Year
  Sex: Female

DRUGS (4)
  1. AVONEX [Concomitant]
     Indication: MULTIPLE SCLEROSIS
     Route: 030
     Dates: start: 20070901
  2. TYSABRI [Suspect]
     Indication: MULTIPLE SCLEROSIS
     Route: 042
     Dates: start: 20070731, end: 20070731
  3. TYSABRI [Suspect]
     Route: 042
     Dates: start: 20120731
  4. AVONEX [Concomitant]
     Route: 030
     Dates: start: 20010316, end: 20070525

REACTIONS (2)
  - SOMNOLENCE [None]
  - ANXIETY [None]
